FAERS Safety Report 6180656-6 (Version None)
Quarter: 2009Q2

REPORT INFORMATION
  Report Type: 
  Country: None (occurrence: None)
  Receive Date: 20090506
  Receipt Date: 20090427
  Transmission Date: 20091009
  Serious: Yes (Other)
  Sender: FDA-Public Use
  Company Number: US-JNJFOC-20090301578

PATIENT
  Sex: Female
  Weight: 68.04 kg

DRUGS (6)
  1. REMICADE [Suspect]
     Route: 042
  2. REMICADE [Suspect]
     Indication: RHEUMATOID ARTHRITIS
     Route: 042
  3. VOLTAREN [Concomitant]
  4. OSCAL+VITAMIN D [Concomitant]
  5. DARVOCET-N 100 [Concomitant]
  6. PRILOSEC [Concomitant]

REACTIONS (8)
  - BACK PAIN [None]
  - CERUMEN IMPACTION [None]
  - COUGH [None]
  - DRY MOUTH [None]
  - HEADACHE [None]
  - RHINITIS [None]
  - SYSTEMIC LUPUS ERYTHEMATOSUS RASH [None]
  - URTICARIA [None]
